FAERS Safety Report 14821949 (Version 1)
Quarter: 2018Q2

REPORT INFORMATION
  Report Type: Spontaneous
  Country: US (occurrence: US)
  Receive Date: 20180427
  Receipt Date: 20180427
  Transmission Date: 20180711
  Serious: No
  Sender: FDA-Public Use
  Company Number: US-DRREDDYS-USA/USA/17/0090916

PATIENT
  Age: 21 Year
  Sex: Female

DRUGS (5)
  1. RISPERIDONE. [Suspect]
     Active Substance: RISPERIDONE
     Indication: SCHIZOPHRENIA
     Dosage: 0.5MG EVERY MORNING
     Route: 065
     Dates: start: 20150203
  2. RISPERIDONE. [Suspect]
     Active Substance: RISPERIDONE
     Dosage: 1MG AT BEDTIME
     Route: 065
     Dates: start: 20150219
  3. RISPERIDONE. [Suspect]
     Active Substance: RISPERIDONE
     Dosage: 1MG AT BEDTIME
     Route: 065
     Dates: start: 20150203
  4. QUETIAPINE. [Suspect]
     Active Substance: QUETIAPINE
     Indication: SCHIZOPHRENIA
     Route: 065
  5. RISPERIDONE. [Suspect]
     Active Substance: RISPERIDONE
     Dosage: 1MG TWICE A DAY
     Route: 065
     Dates: start: 20150127

REACTIONS (6)
  - Dizziness [Unknown]
  - Hyperprolactinaemia [Recovered/Resolved]
  - Blister [Unknown]
  - Akathisia [Recovered/Resolved]
  - Amenorrhoea [Unknown]
  - Sedation [Unknown]
